FAERS Safety Report 11085445 (Version 2)
Quarter: 2015Q2

REPORT INFORMATION
  Report Type: Spontaneous
  Country: US (occurrence: US)
  Receive Date: 20150503
  Receipt Date: 20150525
  Transmission Date: 20150821
  Serious: No
  Sender: FDA-Public Use
  Company Number: US-JNJFOC-20140413161

PATIENT
  Age: 41 Year
  Sex: Female
  Weight: 88.45 kg

DRUGS (3)
  1. ORTHO EVRA [Suspect]
     Active Substance: ETHINYL ESTRADIOL\NORELGESTROMIN
     Indication: MENORRHAGIA
     Route: 062
     Dates: start: 201403
  2. DIOVAN [Concomitant]
     Active Substance: VALSARTAN
     Indication: HYPERTENSION
     Route: 048
     Dates: start: 2013
  3. ORTHO EVRA [Suspect]
     Active Substance: ETHINYL ESTRADIOL\NORELGESTROMIN
     Indication: CONTRACEPTION
     Route: 062
     Dates: start: 201403

REACTIONS (7)
  - Abdominal pain [Recovering/Resolving]
  - Inappropriate schedule of drug administration [Unknown]
  - Vaginal haemorrhage [Not Recovered/Not Resolved]
  - Product quality issue [Unknown]
  - Dysmenorrhoea [Recovering/Resolving]
  - Drug administered at inappropriate site [Unknown]
  - Menorrhagia [Recovering/Resolving]

NARRATIVE: CASE EVENT DATE: 20140314
